FAERS Safety Report 8103375-5 (Version None)
Quarter: 2012Q1

REPORT INFORMATION
  Report Type: 
  Country: None (occurrence: None)
  Receive Date: 20120201
  Receipt Date: 20120127
  Transmission Date: 20120608
  Serious: Yes (Hospitalization, Other)
  Sender: FDA-Public Use
  Company Number: US-PFIZER INC-2012026353

PATIENT
  Sex: Female

DRUGS (4)
  1. CELEBREX [Suspect]
  2. VISTARIL [Suspect]
  3. NEURONTIN [Suspect]
  4. CADUET [Suspect]

REACTIONS (5)
  - RENAL FAILURE [None]
  - HYPOACUSIS [None]
  - PNEUMONIA [None]
  - DRUG INTOLERANCE [None]
  - ARTHRITIS [None]
